FAERS Safety Report 17809780 (Version 1)
Quarter: 2020Q2

REPORT INFORMATION
  Report Type: Spontaneous
  Country: US (occurrence: US)
  Receive Date: 20200520
  Receipt Date: 20200520
  Transmission Date: 20200714
  Serious: Yes (Hospitalization, Other)
  Sender: FDA-Public Use
  Company Number: NVSC2020US124668

PATIENT
  Age: 56 Year
  Sex: Female

DRUGS (9)
  1. R-GDP [GEMCITABINE] [Suspect]
     Active Substance: GEMCITABINE
     Indication: DIFFUSE LARGE B-CELL LYMPHOMA
     Dosage: UNK
     Route: 065
  2. CYCLOPHOSPHAMIDE. [Suspect]
     Active Substance: CYCLOPHOSPHAMIDE
     Indication: DIFFUSE LARGE B-CELL LYMPHOMA
     Dosage: 6 OT, CYCLIC
     Route: 065
     Dates: start: 20190823, end: 20191205
  3. 14-HYDROXYDAUNOMYCIN HCL [Suspect]
     Active Substance: DOXORUBICIN HYDROCHLORIDE
     Indication: DIFFUSE LARGE B-CELL LYMPHOMA
     Dosage: 6 OT, CYCLIC
     Route: 065
     Dates: start: 20190823, end: 20191205
  4. PREDNISONE. [Suspect]
     Active Substance: PREDNISONE
     Indication: DIFFUSE LARGE B-CELL LYMPHOMA
     Dosage: 6 OT, CYCLIC
     Route: 065
     Dates: start: 20190823, end: 20191205
  5. ONCOVIN [Suspect]
     Active Substance: VINCRISTINE SULFATE
     Indication: DIFFUSE LARGE B-CELL LYMPHOMA
     Dosage: 6 OT, CYCLIC
     Route: 065
     Dates: start: 20190823, end: 20191205
  6. R-GDP [RITUXIMAB] [Suspect]
     Active Substance: RITUXIMAB
  7. R-GDP [DEXAMETHASONE] [Suspect]
     Active Substance: DEXAMETHASONE
  8. R-GDP [CISPLATIN] [Suspect]
     Active Substance: CISPLATIN
  9. RITUXIMAB. [Suspect]
     Active Substance: RITUXIMAB
     Indication: DIFFUSE LARGE B-CELL LYMPHOMA
     Dosage: 6 OT, CYCLIC
     Route: 065
     Dates: start: 20190823, end: 20191205

REACTIONS (6)
  - B-cell lymphoma [Unknown]
  - Necrosis [Unknown]
  - Lymphadenopathy [Unknown]
  - Diffuse large B-cell lymphoma [Unknown]
  - Malignant neoplasm progression [Unknown]
  - Haematoma [Unknown]

NARRATIVE: CASE EVENT DATE: 20200114
